FAERS Safety Report 5710146-3 (Version None)
Quarter: 2008Q2

REPORT INFORMATION
  Report Type: 
  Country: None (occurrence: None)
  Receive Date: 20080418
  Receipt Date: 20080409
  Transmission Date: 20081010
  Serious: Yes (Hospitalization, Other)
  Sender: FDA-Public Use
  Company Number: FR-ABBOTT-08P-056-0446429-00

PATIENT
  Sex: Male

DRUGS (9)
  1. DEPAKENE [Suspect]
     Indication: HAEMANGIOMA
     Route: 048
     Dates: start: 20071227, end: 20080229
  2. CARBIMAZOLE [Suspect]
     Indication: HYPERTHYROIDISM
     Route: 048
     Dates: end: 20080229
  3. CARBIMAZOLE [Suspect]
     Route: 048
     Dates: start: 20071229
  4. CARBIMAZOLE [Suspect]
     Route: 048
     Dates: start: 20080304, end: 20080308
  5. RAMIPRIL [Concomitant]
     Indication: HYPERTENSION
     Route: 048
  6. CORTICOSTEROID NOS [Concomitant]
     Indication: DRUG USE FOR UNKNOWN INDICATION
     Dates: start: 20071229, end: 20080203
  7. CORTICOSTEROID NOS [Concomitant]
     Dates: start: 20080204, end: 20080211
  8. CORTICOSTEROID NOS [Concomitant]
     Dates: start: 20080212, end: 20080219
  9. CORTICOSTEROID NOS [Concomitant]
     Dates: start: 20080220, end: 20080303

REACTIONS (12)
  - ANAEMIA [None]
  - CHOLESTASIS [None]
  - CONFUSIONAL STATE [None]
  - DRUG RASH WITH EOSINOPHILIA AND SYSTEMIC SYMPTOMS [None]
  - GENERAL PHYSICAL HEALTH DETERIORATION [None]
  - LUNG NEOPLASM [None]
  - LYMPHADENOPATHY [None]
  - MIXED LIVER INJURY [None]
  - NERVOUS SYSTEM DISORDER [None]
  - PYREXIA [None]
  - RASH MACULAR [None]
  - THYROID NEOPLASM [None]
